FAERS Safety Report 6006562-5 (Version None)
Quarter: 2008Q4

REPORT INFORMATION
  Report Type: 
  Country: None (occurrence: None)
  Receive Date: 20081217
  Receipt Date: 20081202
  Transmission Date: 20090506
  Serious: Yes (Death)
  Sender: FDA-Public Use
  Company Number: JP-PFIZER INC-2008154367

PATIENT

DRUGS (15)
  1. SILDENAFIL CITRATE [Suspect]
     Indication: PULMONARY HYPERTENSION
     Dosage: 20 MG, 3X/DAY
     Route: 048
     Dates: start: 20080428, end: 20080505
  2. SILDENAFIL CITRATE [Suspect]
     Indication: PULMONARY ARTERIAL HYPERTENSION
  3. FLOLAN [Concomitant]
  4. TRACLEER [Concomitant]
  5. SEPAMIT [Concomitant]
  6. LASIX [Concomitant]
  7. ALDACTONE [Concomitant]
  8. GLYCYRON [Concomitant]
  9. URSO 250 [Concomitant]
  10. ONE-ALPHA [Concomitant]
  11. ALLOID [Concomitant]
  12. CRAVIT [Concomitant]
  13. COTRIM [Concomitant]
  14. VICCILLIN [Concomitant]
  15. SLOW-FE [Concomitant]

REACTIONS (1)
  - HEPATIC FAILURE [None]
